FAERS Safety Report 22021031 (Version 1)
Quarter: 2023Q1

REPORT INFORMATION
  Report Type: Spontaneous
  Country: DE (occurrence: DE)
  Receive Date: 20230222
  Receipt Date: 20230222
  Transmission Date: 20230417
  Serious: Yes (Other)
  Sender: FDA-Public Use
  Company Number: DE-UCBSA-2023005165

PATIENT
  Age: 38 Year
  Sex: Male

DRUGS (2)
  1. LEVETIRACETAM [Suspect]
     Active Substance: LEVETIRACETAM
     Indication: Generalised tonic-clonic seizure
     Dosage: 1000 MILLIGRAM, QD
     Route: 065
  2. LEVETIRACETAM [Suspect]
     Active Substance: LEVETIRACETAM
     Indication: Epilepsy
     Dosage: 3000 MILLIGRAM, QD, 1500 MILLIGRAM, 2X/DAY (BID)
     Route: 065
     Dates: start: 202006

REACTIONS (4)
  - Haemorrhage [Unknown]
  - Epilepsy [Recovered/Resolved]
  - Drug ineffective [Unknown]
  - Pyruvate kinase deficiency anaemia [Unknown]
